FAERS Safety Report 7435627-6 (Version None)
Quarter: 2011Q2

REPORT INFORMATION
  Report Type: 
  Country: None (occurrence: None)
  Receive Date: 20110425
  Receipt Date: 20110214
  Transmission Date: 20111010
  Serious: No
  Sender: FDA-Public Use
  Company Number: US-MYLANLABS-2010S1023438

PATIENT
  Age: 68 Year
  Sex: Male
  Weight: 106.14 kg

DRUGS (12)
  1. CLONIDINE [Suspect]
     Dosage: CHANGED QWEEK.
     Route: 062
     Dates: start: 20100908, end: 20110119
  2. T4 [Concomitant]
     Indication: THYROID DISORDER
  3. TERAZOSIN [Concomitant]
     Dates: start: 20101122
  4. TRAZODONE HCL [Concomitant]
     Dosage: 50MG TABLETS
     Dates: start: 20070101
  5. IBUPROFEN [Concomitant]
  6. CLONIDINE [Concomitant]
  7. TYLENOL W/ CODEINE NO. 3 [Concomitant]
     Indication: THYROID DISORDER
  8. COREG [Concomitant]
     Dates: start: 20090101
  9. RANITIDINE [Concomitant]
     Dates: start: 20080901
  10. CLONIDINE [Suspect]
     Indication: HYPERTENSION
     Dosage: CHANGED QWEEK.  PATIENT WEARS (2) CTS AT ONE TIME.
     Route: 062
     Dates: start: 20101220
  11. CLONIDINE [Suspect]
     Dosage: CHANGED QWEEK.
     Route: 062
     Dates: start: 20100908, end: 20110119
  12. CLONIDINE [Suspect]
     Indication: BLOOD PRESSURE INCREASED
     Dosage: CHANGED QWEEK.  PATIENT WEARS (2) CTS AT ONE TIME.
     Route: 062
     Dates: start: 20101220

REACTIONS (3)
  - DRUG INEFFECTIVE [None]
  - BLOOD PRESSURE INCREASED [None]
  - THERAPEUTIC RESPONSE DELAYED [None]
